FAERS Safety Report 12594870 (Version 1)
Quarter: 2016Q3

REPORT INFORMATION
  Report Type: Spontaneous
  Country: FR (occurrence: FR)
  Receive Date: 20160726
  Receipt Date: 20160726
  Transmission Date: 20161109
  Serious: Yes (Other)
  Sender: FDA-Public Use
  Company Number: FR-PFIZER INC-2016355723

PATIENT
  Age: 26 Year
  Sex: Male

DRUGS (3)
  1. XANAX [Suspect]
     Active Substance: ALPRAZOLAM
     Indication: SOCIAL ANXIETY DISORDER
     Dosage: UNK
     Route: 048
     Dates: start: 2015, end: 20160623
  2. ZOLPIDEM [Suspect]
     Active Substance: ZOLPIDEM\ZOLPIDEM TARTRATE
     Indication: SOCIAL ANXIETY DISORDER
     Dosage: UNK
     Route: 048
     Dates: start: 2015, end: 20160623
  3. VALIUM [Suspect]
     Active Substance: DIAZEPAM
     Indication: SOCIAL ANXIETY DISORDER
     Dosage: UNK
     Route: 048
     Dates: start: 2015, end: 20160623

REACTIONS (4)
  - Hyperhidrosis [Unknown]
  - Withdrawal syndrome [Unknown]
  - Dizziness [Unknown]
  - Dyspnoea [Unknown]

NARRATIVE: CASE EVENT DATE: 20160623
